FAERS Safety Report 25210788 (Version 1)
Quarter: 2025Q2

REPORT INFORMATION
  Report Type: Spontaneous
  Country: US (occurrence: US)
  Receive Date: 20250417
  Receipt Date: 20250417
  Transmission Date: 20250717
  Serious: No
  Sender: ABBVIE
  Company Number: US-ABBVIE-6224556

PATIENT
  Sex: Female

DRUGS (1)
  1. RINVOQ [Suspect]
     Active Substance: UPADACITINIB
     Indication: Paternal exposure timing unspecified
     Route: 064

REACTIONS (4)
  - Foetal exposure during pregnancy [Unknown]
  - Flatulence [Not Recovered/Not Resolved]
  - Acne infantile [Not Recovered/Not Resolved]
  - Paternal exposure during pregnancy [Unknown]

NARRATIVE: CASE EVENT DATE: 20240101
